FAERS Safety Report 6077326-1 (Version None)
Quarter: 2009Q1

REPORT INFORMATION
  Report Type: 
  Country: None (occurrence: None)
  Receive Date: 20090213
  Receipt Date: 20090209
  Transmission Date: 20090719
  Serious: Yes (Hospitalization)
  Sender: FDA-Public Use
  Company Number: B0557210A

PATIENT
  Age: 69 Year
  Sex: Male
  Weight: 57 kg

DRUGS (1)
  1. VALTREX [Suspect]
     Indication: HERPES ZOSTER
     Dosage: 500MG PER DAY
     Route: 048
     Dates: start: 20090123, end: 20090124

REACTIONS (4)
  - DYSLALIA [None]
  - ENCEPHALOPATHY [None]
  - GAIT DISTURBANCE [None]
  - MOOD ALTERED [None]
